FAERS Safety Report 7389864-X (Version None)
Quarter: 2011Q2

REPORT INFORMATION
  Report Type: 
  Country: None (occurrence: None)
  Receive Date: 20110401
  Receipt Date: 20110321
  Transmission Date: 20111010
  Serious: Yes (Hospitalization)
  Sender: FDA-Public Use
  Company Number: US-MYLANLABS-2011S1003006

PATIENT
  Age: 25 Year
  Sex: Male
  Weight: 93.44 kg

DRUGS (17)
  1. CLOZAPINE [Suspect]
     Indication: SCHIZOAFFECTIVE DISORDER
     Route: 048
     Dates: start: 20110107, end: 20110121
  2. CLOZAPINE [Suspect]
     Route: 048
     Dates: start: 20110107, end: 20110121
  3. SIMETHICONE [Concomitant]
     Dates: start: 20101217
  4. CLOZAPINE [Suspect]
     Route: 048
     Dates: start: 20110107, end: 20110121
  5. CLOZAPINE [Suspect]
     Route: 048
     Dates: start: 20110107, end: 20110121
  6. ASPIRIN [Concomitant]
     Indication: PYREXIA
     Dates: start: 20110121, end: 20110123
  7. MULTIVITAMIN WITH MINERALS [Concomitant]
     Dates: start: 20110106
  8. CLOZAPINE [Suspect]
     Indication: BIPOLAR DISORDER
     Route: 048
     Dates: start: 20110107, end: 20110121
  9. CLOZAPINE [Suspect]
     Route: 048
     Dates: start: 20110107, end: 20110121
  10. CLOZAPINE [Suspect]
     Indication: PSYCHOTIC DISORDER
     Route: 048
     Dates: start: 20110107, end: 20110121
  11. CLONAZEPAM [Concomitant]
     Dates: start: 20110112
  12. CLOZAPINE [Suspect]
     Route: 048
     Dates: start: 20110107, end: 20110121
  13. CLOZAPINE [Suspect]
     Route: 048
     Dates: start: 20110107, end: 20110121
  14. ALBUTEROL INHALER [Concomitant]
     Indication: DYSPNOEA
     Dates: start: 20110120, end: 20110123
  15. CLOZAPINE [Suspect]
     Route: 048
     Dates: start: 20110107, end: 20110121
  16. LITHIUM CARBONATE [Concomitant]
     Dates: start: 20101228
  17. BENZTROPINE [Concomitant]
     Dates: start: 20101130

REACTIONS (17)
  - FATIGUE [None]
  - VOMITING [None]
  - MALAISE [None]
  - PLEURAL EFFUSION [None]
  - CARDIOMEGALY [None]
  - CARDIOMYOPATHY [None]
  - PYREXIA [None]
  - CARDIAC FAILURE CONGESTIVE [None]
  - BLOOD CREATINE PHOSPHOKINASE INCREASED [None]
  - TACHYCARDIA [None]
  - LUNG INFILTRATION [None]
  - NAUSEA [None]
  - PNEUMONIA [None]
  - SOMNOLENCE [None]
  - MYALGIA [None]
  - CARDIAC FAILURE [None]
  - ATELECTASIS [None]
